FAERS Safety Report 8020767-3 (Version None)
Quarter: 2012Q1

REPORT INFORMATION
  Report Type: 
  Country: None (occurrence: None)
  Receive Date: 20120104
  Receipt Date: 20111226
  Transmission Date: 20120608
  Serious: Yes (Hospitalization, Other)
  Sender: FDA-Public Use
  Company Number: FR-BIOGENIDEC-2011BI046715

PATIENT
  Age: 44 Year
  Sex: Female

DRUGS (2)
  1. ESTROGEN PROGESTIN CONTRACEPTION [Concomitant]
     Indication: ORAL CONTRACEPTION
  2. TYSABRI [Suspect]
     Indication: MULTIPLE SCLEROSIS
     Route: 042
     Dates: start: 20080101, end: 20111125

REACTIONS (1)
  - BREAST CANCER [None]
